FAERS Safety Report 7184756-3 (Version None)
Quarter: 2010Q4

REPORT INFORMATION
  Report Type: 
  Country: None (occurrence: None)
  Receive Date: 20101222
  Receipt Date: 20101220
  Transmission Date: 20110411
  Serious: Yes (Other)
  Sender: FDA-Public Use
  Company Number: US-PFIZER INC-2010176082

PATIENT
  Sex: Female
  Weight: 114 kg

DRUGS (12)
  1. ZOSYN [Suspect]
     Indication: PYREXIA
     Dosage: 3.375 G, UNK
     Route: 042
     Dates: start: 20101208, end: 20101210
  2. HEPARIN [Concomitant]
     Dosage: UNK
  3. INSULIN ASPART [Concomitant]
     Dosage: UNK
  4. INSULIN GLARGINE [Concomitant]
     Dosage: UNK
  5. LEVOTHYROXINE [Concomitant]
     Dosage: UNK
  6. BACTRIM [Concomitant]
     Dosage: UNK
  7. VANCOMYCIN [Concomitant]
     Dosage: UNK
  8. ACETAMINOPHEN [Concomitant]
     Dosage: UNK
  9. IPRATROPIUM BROMIDE AND ALBUTEROL SULFATE [Concomitant]
     Dosage: UNK
  10. ALBUTEROL [Concomitant]
     Dosage: UNK
  11. ALTEPLASE [Concomitant]
     Dosage: 1 MG, UNK
  12. CIMETIDINE [Concomitant]
     Dosage: UNK

REACTIONS (1)
  - PYREXIA [None]
